FAERS Safety Report 21762655 (Version 1)
Quarter: 2022Q4

REPORT INFORMATION
  Report Type: Spontaneous
  Country: AR (occurrence: AR)
  Receive Date: 20221221
  Receipt Date: 20221221
  Transmission Date: 20230112
  Serious: Yes (Hospitalization, Other)
  Sender: FDA-Public Use
  Company Number: AR-ELI_LILLY_AND_COMPANY-AR202212008473

PATIENT
  Age: 53 Year
  Sex: Female
  Weight: 61 kg

DRUGS (1)
  1. VERZENIO [Suspect]
     Active Substance: ABEMACICLIB
     Indication: Breast cancer
     Dosage: 150 MG, BID
     Route: 048
     Dates: start: 20211216, end: 20221014

REACTIONS (4)
  - Chest pain [Unknown]
  - Hypotension [Unknown]
  - Arteriosclerosis coronary artery [Unknown]
  - Pneumonia [Unknown]

NARRATIVE: CASE EVENT DATE: 20220910
